FAERS Safety Report 16074462 (Version 2)
Quarter: 2019Q2

REPORT INFORMATION
  Report Type: Spontaneous
  Country: US (occurrence: US)
  Receive Date: 20190314
  Receipt Date: 20190625
  Transmission Date: 20190711
  Serious: Yes (Hospitalization, Other)
  Sender: FDA-Public Use
  Company Number: US-PFIZER INC-2019104089

PATIENT
  Age: 67 Year
  Sex: Female
  Weight: 95.25 kg

DRUGS (3)
  1. KETAMINE HCL [Suspect]
     Active Substance: KETAMINE HYDROCHLORIDE
     Indication: KNEE ARTHROPLASTY
  2. KETAMINE HCL [Suspect]
     Active Substance: KETAMINE HYDROCHLORIDE
     Indication: SURGERY
     Dosage: UNK
     Route: 042
     Dates: start: 20190226
  3. KETAMINE HCL [Suspect]
     Active Substance: KETAMINE HYDROCHLORIDE
     Indication: ANAESTHESIA

REACTIONS (5)
  - Somnolence [Recovered/Resolved]
  - Depressed mood [Not Recovered/Not Resolved]
  - Hallucination, visual [Unknown]
  - Crying [Not Recovered/Not Resolved]
  - Emotional disorder [Not Recovered/Not Resolved]

NARRATIVE: CASE EVENT DATE: 20190226
